FAERS Safety Report 7220092-4 (Version None)
Quarter: 2011Q1

REPORT INFORMATION
  Report Type: 
  Country: None (occurrence: None)
  Receive Date: 20110111
  Receipt Date: 20110105
  Transmission Date: 20110831
  Serious: Yes (Other)
  Sender: FDA-Public Use
  Company Number: B0653313A

PATIENT
  Sex: Female
  Weight: 59 kg

DRUGS (5)
  1. ZONISAMIDE [Concomitant]
     Route: 048
  2. TEGRETOL [Concomitant]
     Indication: EPILEPSY
     Dosage: 1600MG PER DAY
     Route: 048
  3. FOLIAMIN [Concomitant]
     Indication: EPILEPSY
     Dosage: 5MG PER DAY
     Route: 048
     Dates: start: 20100121
  4. LAMICTAL [Suspect]
     Indication: EPILEPSY
     Dosage: 300MG PER DAY
     Route: 048
     Dates: start: 20100101
  5. FENTANYL [Concomitant]
     Dosage: .1MG PER DAY
     Route: 042
     Dates: start: 20100818

REACTIONS (5)
  - DRUG EXPOSURE DURING PREGNANCY [None]
  - CONVULSION [None]
  - CAESAREAN SECTION [None]
  - BLOOD LACTATE DEHYDROGENASE INCREASED [None]
  - DEPRESSED LEVEL OF CONSCIOUSNESS [None]
